FAERS Safety Report 4427022-9 (Version None)
Quarter: 2004Q3

REPORT INFORMATION
  Report Type: 
  Country: None (occurrence: None)
  Receive Date: 20040816
  Receipt Date: 20020312
  Transmission Date: 20050211
  Serious: Yes (Death, Hospitalization, Other)
  Sender: FDA-Public Use
  Company Number: US-MERCK-0203USA01574

PATIENT
  Age: 58 Year
  Sex: Female
  Weight: 62 kg

DRUGS (23)
  1. DARVOCET-N 100 [Concomitant]
     Route: 065
  2. ALBUTEROL [Concomitant]
     Route: 055
  3. ALUMINUM HYDROXIDE [Concomitant]
     Route: 048
  4. NORVASC [Concomitant]
     Route: 048
  5. CALCIUM CARBONATE [Concomitant]
     Route: 065
  6. GANCICLOVIR [Concomitant]
     Route: 065
  7. HYZAAR [Suspect]
     Indication: HYPERTENSION
     Route: 048
     Dates: start: 20000201, end: 20000417
  8. DIAZIDE [Concomitant]
     Route: 048
  9. INSULIN [Concomitant]
     Route: 065
  10. EPIVIR [Concomitant]
     Route: 065
  11. PREVACID [Concomitant]
     Route: 065
  12. MAGNESIUM OXIDE [Concomitant]
     Route: 065
  13. ANTIVERT [Concomitant]
     Route: 065
     Dates: start: 20000101
  14. GLUCOPHAGE [Concomitant]
     Indication: DIABETES MELLITUS
     Route: 048
  15. FLAGYL [Concomitant]
     Route: 065
  16. CELLCEPT [Concomitant]
     Route: 065
  17. NYSTATIN [Concomitant]
     Route: 065
  18. PAXIL [Concomitant]
     Route: 065
  19. PREDNISONE [Concomitant]
     Route: 065
  20. PROGRAF [Concomitant]
     Route: 065
  21. ACTIGALL [Concomitant]
     Route: 065
  22. VITAMINS (UNSPECIFIED) [Concomitant]
     Route: 065
  23. AMBIEN [Concomitant]
     Route: 065

REACTIONS (17)
  - CARDIAC ARREST [None]
  - CHOLECYSTITIS CHRONIC [None]
  - DIALYSIS [None]
  - DIZZINESS [None]
  - EMOTIONAL DISORDER [None]
  - GENERAL SYMPTOM [None]
  - HEPATIC FAILURE [None]
  - IMMUNOSUPPRESSION [None]
  - INJURY [None]
  - LIVER FUNCTION TEST ABNORMAL [None]
  - LIVER TRANSPLANT [None]
  - MENTAL DISORDER [None]
  - NAUSEA [None]
  - PNEUMONIA [None]
  - PULMONARY EMBOLISM [None]
  - RENAL FAILURE ACUTE [None]
  - SEPSIS [None]
